FAERS Safety Report 5674156-7 (Version None)
Quarter: 2008Q1

REPORT INFORMATION
  Report Type: 
  Country: None (occurrence: None)
  Receive Date: 20080320
  Receipt Date: 20080317
  Transmission Date: 20080703
  Serious: Yes (Death, Hospitalization)
  Sender: FDA-Public Use
  Company Number: US-BRISTOL-MYERS SQUIBB COMPANY-14078919

PATIENT
  Age: 57 Year
  Sex: Male

DRUGS (14)
  1. DASATINIB [Suspect]
     Indication: COLORECTAL CANCER METASTATIC
     Route: 048
     Dates: start: 20080118, end: 20080208
  2. CETUXIMAB [Suspect]
     Indication: COLORECTAL CANCER METASTATIC
     Dosage: ADMINISTERED ON DAY 1 + 8 OF EVERY CYCLE
     Route: 042
     Dates: start: 20080118, end: 20080208
  3. OXALIPLATIN [Suspect]
     Indication: COLORECTAL CANCER METASTATIC
     Dosage: ADMINISTERED ON DAY 1 OF EVERY CYCLE
     Route: 042
     Dates: start: 20080118, end: 20080208
  4. LEUCOVORIN CALCIUM [Suspect]
     Indication: COLORECTAL CANCER METASTATIC
     Dosage: LEUCOVORIN - 200 MG/M2 ON DAY 1.
     Route: 042
     Dates: start: 20080118, end: 20080208
  5. FLUOROURACIL [Suspect]
     Indication: COLORECTAL CANCER METASTATIC
     Dosage: 5-FU - 200 MG/M2 ON DAY 1; 2000 MG/M2 OVER 48 HRS.
     Route: 042
     Dates: start: 20080118, end: 20080208
  6. ZOLOFT [Concomitant]
  7. XANAX [Concomitant]
  8. MIRALAX [Concomitant]
  9. OXYCONTIN [Concomitant]
  10. OXYCODONE HCL [Concomitant]
  11. REGLAN [Concomitant]
  12. MEGACE [Concomitant]
  13. VICODIN [Concomitant]
  14. DEXAMETHASONE TAB [Concomitant]

REACTIONS (2)
  - PLEURAL EFFUSION [None]
  - PNEUMONIA [None]
